FAERS Safety Report 18587944 (Version 1)
Quarter: 2020Q4

REPORT INFORMATION
  Report Type: Report from Study
  Country: US (occurrence: US)
  Receive Date: 20201207
  Receipt Date: 20201207
  Transmission Date: 20210114
  Serious: Yes (Hospitalization)
  Sender: FDA-Public Use
  Company Number: US-JNJFOC-20201103951

PATIENT
  Age: 81 Year
  Sex: Female

DRUGS (4)
  1. TADALAFIL. [Concomitant]
     Active Substance: TADALAFIL
  2. MACITENTAN [Suspect]
     Active Substance: MACITENTAN
     Indication: PRODUCT USED FOR UNKNOWN INDICATION
     Route: 065
     Dates: start: 202009
  3. MACITENTAN [Suspect]
     Active Substance: MACITENTAN
     Route: 065
     Dates: start: 20201031, end: 202011
  4. OXYGEN. [Concomitant]
     Active Substance: OXYGEN

REACTIONS (6)
  - Dyspnoea [Unknown]
  - Weight increased [Unknown]
  - Adverse event [Unknown]
  - Oxygen consumption increased [Unknown]
  - Oedema [Unknown]
  - Peripheral swelling [Unknown]

NARRATIVE: CASE EVENT DATE: 202011
